FAERS Safety Report 5127865-2 (Version None)
Quarter: 2006Q4

REPORT INFORMATION
  Report Type: 
  Country: None (occurrence: None)
  Receive Date: 20061010
  Receipt Date: 20060918
  Transmission Date: 20070319
  Serious: Yes (Other)
  Sender: FDA-Public Use
  Company Number: ENTC2006-017

PATIENT
  Age: 77 Year
  Sex: Male

DRUGS (5)
  1. STALEVO 100 [Suspect]
     Indication: PARKINSON'S DISEASE
     Dosage: 600/150/800 MG
     Route: 048
     Dates: start: 20041213, end: 20041222
  2. TRIVASTAL [Concomitant]
  3. DEPRENYL [Concomitant]
  4. MODOPAR [Concomitant]
  5. MODOPAR LP [Concomitant]

REACTIONS (2)
  - EYE PAIN [None]
  - OCULAR HYPERTENSION [None]
